FAERS Safety Report 9361261 (Version 2)
Quarter: 2013Q3

REPORT INFORMATION
  Report Type: Spontaneous
  Country: GR (occurrence: GR)
  Receive Date: 20130621
  Receipt Date: 20130722
  Transmission Date: 20140515
  Serious: Yes (Other)
  Sender: FDA-Public Use
  Company Number: GR-ROCHE-1239379

PATIENT
  Age: 25 Year
  Sex: Female

DRUGS (1)
  1. XOLAIR [Suspect]
     Indication: ASTHMA
     Route: 065

REACTIONS (5)
  - Oedema peripheral [Recovered/Resolved]
  - Rash vesicular [Recovered/Resolved]
  - White blood cell count increased [Recovered/Resolved]
  - Dermatitis allergic [Recovered/Resolved]
  - Arthralgia [Recovered/Resolved]
